FAERS Safety Report 21950746 (Version 1)
Quarter: 2023Q1

REPORT INFORMATION
  Report Type: Report from Study
  Country: AT (occurrence: AT)
  Receive Date: 20230203
  Receipt Date: 20230203
  Transmission Date: 20230418
  Serious: Yes (Hospitalization, Disabling)
  Sender: FDA-Public Use
  Company Number: AT-TAKEDA-AT202024544

PATIENT
  Age: 9 Year
  Sex: Male

DRUGS (49)
  1. IDURSULFASE [Suspect]
     Active Substance: IDURSULFASE
     Indication: Mucopolysaccharidosis II
     Dosage: 0.5 MILLIGRAM/KILOGRAM, 1/WEEK
     Route: 042
     Dates: start: 20130820, end: 20180206
  2. DIMETHINDENE [Concomitant]
     Active Substance: DIMETHINDENE
     Indication: Hypersensitivity
     Dosage: UNK
     Route: 042
     Dates: start: 20130910, end: 20180206
  3. TOBRADEX [Concomitant]
     Active Substance: DEXAMETHASONE\TOBRAMYCIN
     Indication: Conjunctivitis
     Dosage: UNK
     Route: 061
     Dates: start: 201404, end: 20140418
  4. DEXAMETHASONE [Concomitant]
     Active Substance: DEXAMETHASONE
     Indication: Bronchitis
     Dosage: UNK
     Route: 048
     Dates: start: 20141118, end: 20141118
  5. SULTANOL [Concomitant]
     Active Substance: ALBUTEROL SULFATE
     Indication: Bronchitis
     Dosage: UNK
     Route: 055
     Dates: start: 20141118, end: 20141126
  6. PULMICORT TURBUHALER [Concomitant]
     Active Substance: BUDESONIDE
     Indication: Bronchitis
     Dosage: UNK
     Route: 055
     Dates: start: 20141118, end: 20141126
  7. OXYMETAZOLINE [Concomitant]
     Active Substance: OXYMETAZOLINE
     Indication: Rhinitis
     Dosage: UNK
     Route: 045
     Dates: start: 20141118, end: 20141126
  8. Collargol [Concomitant]
     Indication: Rhinitis
     Dosage: UNK
     Route: 045
     Dates: start: 201412, end: 201412
  9. Vibrocil [Concomitant]
     Indication: Rhinitis
     Dosage: UNK
     Route: 045
     Dates: start: 20141209
  10. PREDNISOLONE [Concomitant]
     Active Substance: PREDNISOLONE
     Indication: Hypersensitivity
     Dosage: UNK
     Route: 048
     Dates: start: 20150428, end: 201504
  11. NOVALGIN (METAMIZOLE SODIUM) [Concomitant]
     Active Substance: METAMIZOLE SODIUM
     Indication: Pain
     Dosage: UNK
     Route: 048
     Dates: start: 20150521, end: 201506
  12. RISPERIDONE [Concomitant]
     Active Substance: RISPERIDONE
     Indication: Psychomotor hyperactivity
     Dosage: UNK
     Route: 048
     Dates: start: 20150602, end: 20180823
  13. CECLOR [Concomitant]
     Active Substance: CEFACLOR
     Indication: Tonsillitis
     Dosage: UNK
     Route: 048
     Dates: start: 20151025, end: 20151029
  14. SUPRARENIN [Concomitant]
     Active Substance: EPINEPHRINE
     Indication: Bronchospasm
     Dosage: UNK
     Route: 055
     Dates: start: 201602, end: 201602
  15. AUGMENTIN [Concomitant]
     Active Substance: AMOXICILLIN\CLAVULANATE POTASSIUM
     Indication: Bronchitis
     Dosage: UNK
     Route: 048
     Dates: start: 20160201, end: 20160207
  16. BERODUALIN [Concomitant]
     Indication: Bronchitis
     Dosage: UNK
     Route: 055
     Dates: start: 201602, end: 201602
  17. LEVOMEPROMAZINE [Concomitant]
     Active Substance: LEVOMEPROMAZINE
     Indication: Agitation
     Dosage: UNK
     Route: 048
     Dates: start: 20160621, end: 201612
  18. FLUTICASONE PROPIONATE [Concomitant]
     Active Substance: FLUTICASONE PROPIONATE
     Indication: Obstructive airways disorder
     Dosage: UNK
     Route: 055
     Dates: start: 201610, end: 201710
  19. MOVICOL JUNIOR NEUTRAL [Concomitant]
     Indication: Constipation
     Dosage: UNK
     Route: 048
     Dates: start: 2017, end: 2018
  20. MICROKLIST [Concomitant]
     Indication: Constipation
     Dosage: UNK
     Route: 054
     Dates: start: 2017, end: 2018
  21. PIPERACILLIN SODIUM\TAZOBACTAM SODIUM [Concomitant]
     Active Substance: PIPERACILLIN SODIUM\TAZOBACTAM SODIUM
     Indication: Pneumonia
     Dosage: UNK
     Route: 042
     Dates: start: 20170523, end: 20170929
  22. IBUPROFEN [Concomitant]
     Active Substance: IBUPROFEN
     Indication: Pain
     Dosage: UNK
     Route: 048
     Dates: start: 201706, end: 201707
  23. TRILEPTAL [Concomitant]
     Active Substance: OXCARBAZEPINE
     Indication: Seizure
     Dosage: UNK
     Route: 048
     Dates: start: 20170725, end: 20180823
  24. CANDIO HERMAL [Concomitant]
     Indication: Fungal infection
     Dosage: UNK
     Route: 061
     Dates: start: 20170829, end: 201709
  25. MOMETASONE FUROATE [Concomitant]
     Active Substance: MOMETASONE FUROATE
     Indication: Nasal congestion
     Dosage: UNK
     Route: 045
     Dates: start: 20170905, end: 201711
  26. CLONIDINE [Concomitant]
     Active Substance: CLONIDINE
     Indication: Prophylaxis
     Dosage: UNK
     Route: 042
     Dates: start: 20170923, end: 20170926
  27. RACEPINEPHRINE [Concomitant]
     Active Substance: RACEPINEPHRINE
     Indication: Dyspnoea
     Dosage: UNK
     Route: 055
     Dates: start: 20170923, end: 20170923
  28. Temesta [Concomitant]
     Indication: Dyspnoea
     Dosage: UNK
     Route: 042
     Dates: start: 20170923, end: 201709
  29. COMBIVENT [Concomitant]
     Active Substance: ALBUTEROL SULFATE\IPRATROPIUM BROMIDE
     Indication: Dyspnoea
     Dosage: UNK
     Route: 055
     Dates: start: 20171227, end: 20171227
  30. VIBRAVENOS [Concomitant]
     Indication: Pneumonia
     Dosage: UNK
     Route: 042
     Dates: start: 20171227, end: 20180105
  31. MUTAN [Concomitant]
     Dosage: UNK
     Route: 048
     Dates: start: 201802, end: 20180823
  32. ZYPREXA [Concomitant]
     Active Substance: OLANZAPINE
     Indication: Aggression
     Dosage: UNK
     Route: 048
     Dates: start: 201802, end: 20180525
  33. ACETAMINOPHEN [Concomitant]
     Active Substance: ACETAMINOPHEN
     Indication: Pain
     Dosage: UNK
     Route: 048
     Dates: start: 201802, end: 201804
  34. DICLOFENAC SODIUM\ORPHENADRINE CITRATE [Concomitant]
     Active Substance: DICLOFENAC SODIUM\ORPHENADRINE CITRATE
     Indication: Pain
     Dosage: UNK
     Route: 042
     Dates: start: 201802, end: 201802
  35. ULTIVA [Concomitant]
     Active Substance: REMIFENTANIL HYDROCHLORIDE
     Indication: Prophylaxis
     Dosage: UNK
     Route: 042
     Dates: start: 20180215, end: 20180215
  36. Ketanest [Concomitant]
     Indication: Prophylaxis
     Dosage: UNK
     Route: 042
     Dates: start: 20180215, end: 20180215
  37. NEXIUM [Concomitant]
     Active Substance: ESOMEPRAZOLE MAGNESIUM
     Indication: Gastrointestinal disorder prophylaxis
     Dosage: UNK
     Route: 048
     Dates: start: 201805, end: 20180823
  38. Cormagnesin [Concomitant]
     Indication: Prophylaxis
     Dosage: UNK
     Route: 042
     Dates: start: 20180621, end: 20180621
  39. REMESTYP [Concomitant]
     Indication: Prophylaxis
     Dosage: UNK
     Route: 055
     Dates: start: 20180621, end: 20180621
  40. DEXAMETHASONE [Concomitant]
     Active Substance: DEXAMETHASONE
     Indication: Dyspnoea
     Dosage: UNK
     Route: 055
     Dates: start: 20180621, end: 20180621
  41. DIAZEPAM [Concomitant]
     Active Substance: DIAZEPAM
     Indication: Agitation
     Dosage: UNK
     Route: 048
     Dates: start: 20180621, end: 20180621
  42. Dormicum [Concomitant]
     Indication: Agitation
     Dosage: UNK
     Route: 048
     Dates: start: 20180622, end: 20180622
  43. CHLORPROTHIXENE [Concomitant]
     Active Substance: CHLORPROTHIXENE
     Indication: Agitation
     Dosage: UNK
     Route: 048
     Dates: start: 201808, end: 20180813
  44. ACETAMINOPHEN [Concomitant]
     Active Substance: ACETAMINOPHEN
     Indication: Pain
     Dosage: UNK
     Route: 048
     Dates: start: 201807, end: 201808
  45. HALCION [Concomitant]
     Active Substance: TRIAZOLAM
     Indication: Agitation
     Dosage: UNK
     Route: 048
     Dates: start: 201807, end: 201808
  46. SEREVENT DISKUS [Concomitant]
     Active Substance: SALMETEROL XINAFOATE
     Indication: Bronchitis
     Dosage: UNK
     Dates: start: 201807, end: 201808
  47. Bioflorin [Concomitant]
     Indication: Prophylaxis
     Dosage: UNK
     Route: 048
     Dates: start: 201807, end: 201808
  48. Antibiophilus [Concomitant]
     Indication: Prophylaxis
     Dosage: UNK
     Route: 048
     Dates: start: 201808, end: 201808
  49. MORPHINE [Concomitant]
     Active Substance: MORPHINE
     Indication: Agitation
     Dosage: UNK
     Route: 048
     Dates: start: 20180813, end: 20180823

REACTIONS (1)
  - Bronchitis [Recovered/Resolved with Sequelae]

NARRATIVE: CASE EVENT DATE: 20180208
